FAERS Safety Report 10723464 (Version 3)
Quarter: 2015Q1

REPORT INFORMATION
  Report Type: Report from Study
  Country: BR (occurrence: BR)
  Receive Date: 20150120
  Receipt Date: 20150210
  Transmission Date: 20150721
  Serious: Yes (Life-Threatening, Hospitalization, Other)
  Sender: FDA-Public Use
  Company Number: PHHY2015BR006631

PATIENT
  Age: 79 Year
  Sex: Female
  Weight: 80 kg

DRUGS (2)
  1. VENAFLON [Concomitant]
     Indication: CARDIOVASCULAR DISORDER
     Dosage: 2 DF (1 OR 2 TABLETS), QD (DAILY)
     Route: 048
  2. DIOVAN [Suspect]
     Active Substance: VALSARTAN
     Indication: HYPERTENSION
     Dosage: 80 MG, QD (IN THE MORNING)
     Route: 048
     Dates: end: 20150105

REACTIONS (5)
  - Blood pressure increased [Recovered/Resolved]
  - Drug ineffective [Unknown]
  - Osteoarthritis [Unknown]
  - Hiatus hernia [Unknown]
  - Aortic aneurysm [Not Recovered/Not Resolved]

NARRATIVE: CASE EVENT DATE: 20150105
